FAERS Safety Report 20160487 (Version 5)
Quarter: 2022Q2

REPORT INFORMATION
  Report Type: Spontaneous
  Country: KR (occurrence: KR)
  Receive Date: 20211208
  Receipt Date: 20220519
  Transmission Date: 20220721
  Serious: Yes (Other)
  Sender: FDA-Public Use
  Company Number: KR-ASTELLAS-2021US043525

PATIENT
  Age: 49 Year
  Sex: Male

DRUGS (4)
  1. VESICARE [Suspect]
     Active Substance: SOLIFENACIN SUCCINATE
     Indication: Hypertonic bladder
     Route: 048
     Dates: start: 20211106, end: 20211108
  2. VESICARE [Suspect]
     Active Substance: SOLIFENACIN SUCCINATE
     Indication: Dysuria
     Route: 048
     Dates: start: 20211115, end: 20211124
  3. VESICARE [Suspect]
     Active Substance: SOLIFENACIN SUCCINATE
     Indication: Pollakiuria
     Route: 048
     Dates: start: 20211125
  4. VESICARE [Suspect]
     Active Substance: SOLIFENACIN SUCCINATE
     Route: 065
     Dates: start: 202204

REACTIONS (8)
  - Suicidal ideation [Not Recovered/Not Resolved]
  - Constipation [Not Recovered/Not Resolved]
  - Proctalgia [Not Recovered/Not Resolved]
  - Urinary retention [Unknown]
  - Pollakiuria [Unknown]
  - Urinary hesitation [Unknown]
  - Drug ineffective [Unknown]
  - Off label use [Unknown]

NARRATIVE: CASE EVENT DATE: 20211106
